FAERS Safety Report 16753844 (Version 2)
Quarter: 2021Q3

REPORT INFORMATION
  Report Type: Spontaneous
  Country: AU (occurrence: AU)
  Receive Date: 20190829
  Receipt Date: 20210917
  Transmission Date: 20211014
  Serious: Yes (Hospitalization, Other)
  Sender: FDA-Public Use
  Company Number: AU-ACCORD-153030

PATIENT
  Age: 48 Year
  Sex: Male

DRUGS (3)
  1. MONTELUKAST [Suspect]
     Active Substance: MONTELUKAST SODIUM
     Indication: PROPHYLAXIS
  2. DOXEPIN [Suspect]
     Active Substance: DOXEPIN
     Indication: PROPHYLAXIS
  3. TRANEXAMIC ACID. [Suspect]
     Active Substance: TRANEXAMIC ACID
     Indication: PROPHYLAXIS

REACTIONS (1)
  - Drug ineffective [Unknown]
